FAERS Safety Report 13504442 (Version 2)
Quarter: 2017Q2

REPORT INFORMATION
  Report Type: Spontaneous
  Country: DE (occurrence: DE)
  Receive Date: 20170502
  Receipt Date: 20170612
  Transmission Date: 20170830
  Serious: Yes (Life-Threatening, Other)
  Sender: FDA-Public Use
  Company Number: DE-MYLANLABS-2017M1026124

PATIENT

DRUGS (5)
  1. NOVAMINSULFON [Concomitant]
     Active Substance: METAMIZOLE
     Indication: PRODUCT USED FOR UNKNOWN INDICATION
     Dosage: 2000 MG DAILY
     Route: 048
  2. FASTJEKT [Suspect]
     Active Substance: EPINEPHRINE
     Indication: BRONCHOSPASM
  3. DEXAMETHASONE. [Concomitant]
     Active Substance: DEXAMETHASONE
     Indication: PRODUCT USED FOR UNKNOWN INDICATION
     Dosage: 12 MG DAILY
     Route: 048
  4. FASTJEKT [Suspect]
     Active Substance: EPINEPHRINE
     Indication: DYSPNOEA
     Dosage: 0.3 MG, UNK
     Route: 030
     Dates: start: 20170423
  5. FASTJEKT [Suspect]
     Active Substance: EPINEPHRINE
     Indication: CYANOSIS

REACTIONS (1)
  - Device failure [Recovered/Resolved]

NARRATIVE: CASE EVENT DATE: 20170423
